FAERS Safety Report 17432613 (Version 5)
Quarter: 2022Q3

REPORT INFORMATION
  Report Type: Report from Study
  Country: IN (occurrence: IN)
  Receive Date: 20200218
  Receipt Date: 20220908
  Transmission Date: 20221026
  Serious: Yes (Hospitalization)
  Sender: FDA-Public Use
  Company Number: None

PATIENT
  Age: 48 Year
  Sex: Male
  Weight: 49.5 kg

DRUGS (22)
  1. PEMETREXED DISODIUM [Suspect]
     Active Substance: PEMETREXED DISODIUM
     Indication: Non-small cell lung cancer
     Dosage: 700 MG, Q3W
     Route: 042
     Dates: start: 20191106
  2. CANAKINUMAB [Suspect]
     Active Substance: CANAKINUMAB
     Indication: Non-small cell lung cancer
     Dosage: CODE NOT BROKEN
     Route: 058
     Dates: start: 20191106
  3. CANAKINUMAB [Suspect]
     Active Substance: CANAKINUMAB
     Indication: Non-small cell lung cancer
     Dosage: CODE NOT BROKEN
     Route: 058
     Dates: start: 20191106
  4. INVESTIGATIONAL PRODUCT [Suspect]
     Active Substance: INVESTIGATIONAL PRODUCT
     Indication: Non-small cell lung cancer
     Dosage: CODE NOT BROKEN
     Route: 058
     Dates: start: 20191106
  5. PLACEBO [Suspect]
     Active Substance: UNSPECIFIED INGREDIENT
     Indication: Non-small cell lung cancer
     Dosage: CODE NOT BROKEN
     Route: 058
     Dates: start: 20191106
  6. PEMBROLIZUMAB [Suspect]
     Active Substance: PEMBROLIZUMAB
     Indication: Non-small cell lung cancer
     Dosage: 200 MG, Q3W
     Route: 042
     Dates: start: 20191106
  7. TOSSEX [Concomitant]
     Indication: Prophylaxis
     Dosage: UNK
     Route: 065
     Dates: start: 20191014
  8. VITAMIN B12 [Concomitant]
     Active Substance: CYANOCOBALAMIN
     Indication: Prophylaxis
     Dosage: UNK
     Route: 065
     Dates: start: 20191127
  9. ULTRACET [Concomitant]
     Active Substance: ACETAMINOPHEN\TRAMADOL HYDROCHLORIDE
     Indication: Pain prophylaxis
     Dosage: UNK
     Route: 065
     Dates: start: 20191106
  10. ONDANSETRON HYDROCHLORIDE [Concomitant]
     Active Substance: ONDANSETRON HYDROCHLORIDE
     Indication: Prophylaxis of nausea and vomiting
     Dosage: 8 MG
     Route: 065
     Dates: start: 20191106
  11. ATIVAN [Concomitant]
     Active Substance: LORAZEPAM
     Indication: Prophylaxis
     Dosage: 1 MG
     Route: 065
     Dates: start: 20191106
  12. DOLO [Concomitant]
     Indication: Prophylaxis
     Dosage: 650 MG
     Route: 065
     Dates: start: 20191106
  13. ENCICARB [Concomitant]
     Indication: Anaemia
     Dosage: UNK
     Route: 065
     Dates: start: 20191120, end: 20191120
  14. IMODIUM [Concomitant]
     Active Substance: LOPERAMIDE HYDROCHLORIDE
     Indication: Prophylaxis against diarrhoea
     Dosage: UNK
     Route: 065
     Dates: start: 20191106
  15. DUPHALAC [Concomitant]
     Active Substance: LACTULOSE
     Indication: Prophylaxis
     Dosage: 15 ML
     Route: 065
     Dates: start: 20191106
  16. FOLVITE [Concomitant]
     Active Substance: FOLIC ACID
     Indication: Prophylaxis
     Dosage: 5 MG, UNK
     Route: 065
     Dates: start: 20191106
  17. LIVOGEN [Concomitant]
     Indication: Anaemia
     Dosage: UNK
     Route: 065
     Dates: start: 20191120, end: 20191120
  18. LASIX [Concomitant]
     Active Substance: FUROSEMIDE
     Indication: Prophylaxis
     Dosage: UNK
     Route: 065
     Dates: start: 20191120
  19. ENOXAPARIN SODIUM [Concomitant]
     Active Substance: ENOXAPARIN SODIUM
     Indication: Product used for unknown indication
     Dosage: 0.4 MG, UNK
     Route: 065
  20. ACETAMINOPHEN [Concomitant]
     Active Substance: ACETAMINOPHEN
     Indication: Product used for unknown indication
     Dosage: UNK
     Route: 065
  21. TORSEMIDE [Concomitant]
     Active Substance: TORSEMIDE
     Indication: Prophylaxis
     Dosage: 10 MG
     Route: 065
     Dates: start: 20191121
  22. DUOLIN [Concomitant]
     Indication: Product used for unknown indication
     Dosage: UNK
     Route: 065

REACTIONS (1)
  - Anaemia [Recovered/Resolved]

NARRATIVE: CASE EVENT DATE: 20200127
